FAERS Safety Report 20741429 (Version 8)
Quarter: 2024Q1

REPORT INFORMATION
  Report Type: Spontaneous
  Country: US (occurrence: US)
  Receive Date: 20220422
  Receipt Date: 20240111
  Transmission Date: 20240409
  Serious: Yes (Hospitalization, Other)
  Sender: FDA-Public Use
  Company Number: US-PFIZER INC-202200255329

PATIENT
  Age: 68 Year
  Sex: Female
  Weight: 56.689 kg

DRUGS (8)
  1. IBRANCE [Suspect]
     Active Substance: PALBOCICLIB
     Indication: Breast cancer metastatic
     Dosage: 125 MG
  2. IBRANCE [Suspect]
     Active Substance: PALBOCICLIB
     Indication: Bone cancer
     Dosage: 100 MG, CYCLIC (100 MG, 1X/DAY)
     Dates: start: 202201
  3. IBRANCE [Suspect]
     Active Substance: PALBOCICLIB
     Indication: Metastases to bone
     Dosage: 100 MG, CYCLIC (100 MG, 1X/DAY)
     Dates: start: 202201
  4. IBRANCE [Suspect]
     Active Substance: PALBOCICLIB
     Dosage: 100 MG, CYCLIC (100 MG, 1X/DAY)
     Dates: start: 202201
  5. IBRANCE [Suspect]
     Active Substance: PALBOCICLIB
     Dosage: 100 MG, CYCLIC (ONCE DAILY)
     Dates: start: 202202
  6. ASPIRIN [Suspect]
     Active Substance: ASPIRIN
     Dosage: UNK
  7. ANASTROZOLE [Concomitant]
     Active Substance: ANASTROZOLE
     Dosage: UNK, 1X/DAY (ONCE NIGHTLY)
     Dates: start: 202201
  8. ZOMETA [Concomitant]
     Active Substance: ZOLEDRONIC ACID
     Indication: Hepatic enzyme abnormal
     Dosage: UNK, EVERY 3 MONTHS
     Dates: start: 2022

REACTIONS (20)
  - Feeling abnormal [Recovered/Resolved]
  - Tumour marker increased [Recovered/Resolved]
  - Fatigue [Not Recovered/Not Resolved]
  - Asthenia [Not Recovered/Not Resolved]
  - Osteogenesis imperfecta [Unknown]
  - Rib fracture [Unknown]
  - Gastric ulcer [Unknown]
  - Depressed mood [Unknown]
  - Eosinophil count decreased [Not Recovered/Not Resolved]
  - Urticaria [Unknown]
  - White blood cell count decreased [Not Recovered/Not Resolved]
  - Neoplasm progression [Unknown]
  - Bone disorder [Unknown]
  - Gait inability [Recovered/Resolved]
  - Gastrointestinal disorder [Unknown]
  - Crying [Unknown]
  - Social problem [Unknown]
  - Ear pain [Unknown]
  - Illness [Unknown]
  - Headache [Unknown]

NARRATIVE: CASE EVENT DATE: 20220101
